FAERS Safety Report 7398301 (Version 3)
Quarter: 2012Q4

REPORT INFORMATION
  Report Type: Spontaneous
  Country: JP (occurrence: None)
  Receive Date: 20100518
  Receipt Date: 20120905
  Transmission Date: 20130627
  Serious: Yes (Death)
  Sender: FDA-Public Use
  Company Number: 2010JP002782

PATIENT
  Age: 78 Year
  Sex: Male
  Weight: 49 kg

DRUGS (13)
  1. PROGRAF [Suspect]
     Indication: RHEUMATOID ARTHRITIS
     Dosage: ORAL
     Route: 048
     Dates: start: 20081103, end: 200812
  2. PREDNISOLONE [Suspect]
     Indication: RHEUMATOID ARTHRITIS
     Dosage: 5 MG,/D
     Route: 048
     Dates: start: 200604
  3. ACTEMRA [Suspect]
     Indication: RHEUMATOID ARTHRITIS
     Dosage: 400 MG, MONTLY IV DRIP
     Route: 041
     Dates: start: 200808, end: 200809
  4. CYCLOPHOSPHAMIDE [Suspect]
     Indication: RHEUMATOID ARTHRITIS
     Dosage: ORAL
     Route: 048
     Dates: start: 20081203, end: 200901
  5. SOLU-MEDROL [Suspect]
     Indication: SKIN ULCER
     Dosage: 1000 mg, UID/QD, IV drip
     Route: 041
     Dates: start: 20090218, end: 20090220
  6. AZULFIDINE EN (SULFASALAZINE) [Concomitant]
  7. RIMATIL (BUCILLAMINE) [Concomitant]
  8. ITRACONAZOLE (ITRACONAZOLE) [Concomitant]
  9. SHIOSOL (SODIUM AUROTHIOMALATE) [Concomitant]
  10. ANPLAG (SARPOGRELATE HYDROCHLORIDE) [Concomitant]
  11. OPALMON (LIMAPROST) [Concomitant]
  12. TAKEPRON (LANSOPRAZOLE) [Concomitant]
  13. FLUCONAZOLE (FLUCONAZOLE) [Concomitant]

REACTIONS (41)
  - Sporotrichosis [None]
  - Fungal sepsis [None]
  - Candidiasis [None]
  - Culture positive [None]
  - Drug ineffective [None]
  - Condition aggravated [None]
  - Skin ulcer [None]
  - Skin necrosis [None]
  - Genital ulceration [None]
  - Fibrin degradation products increased [None]
  - Thrombin-antithrombin III complex increased [None]
  - Culture wound positive [None]
  - Leukocytoclastic vasculitis [None]
  - Device related sepsis [None]
  - Tendon disorder [None]
  - Muscle disorder [None]
  - No therapeutic response [None]
  - Respiratory disorder [None]
  - Pulmonary cavitation [None]
  - Blood culture positive [None]
  - Cardiac arrest [None]
  - Respiratory failure [None]
  - Sputum culture positive [None]
  - Drug eruption [None]
  - Rheumatoid arthritis [None]
  - Deep vein thrombosis [None]
  - General physical health deterioration [None]
  - Erosive oesophagitis [None]
  - Gastric ulcer [None]
  - Pyrexia [None]
  - Wound infection [None]
  - Staphylococcal bacteraemia [None]
  - Fungaemia [None]
  - Eye infection fungal [None]
  - Respiratory tract infection fungal [None]
  - Hypoalbuminaemia [None]
  - Generalised oedema [None]
  - Pleural effusion [None]
  - Oliguria [None]
  - Disseminated intravascular coagulation [None]
  - Disease progression [None]
